FAERS Safety Report 14413827 (Version 1)
Quarter: 2018Q1

REPORT INFORMATION
  Report Type: Spontaneous
  Country: US (occurrence: US)
  Receive Date: 20180117
  Receipt Date: 20180117
  Transmission Date: 20180509
  Serious: Yes (Other)
  Sender: FDA-Public Use
  Company Number: None

PATIENT
  Age: 8 Year
  Sex: Female
  Weight: 32.66 kg

DRUGS (1)
  1. GUANFACINE 1MG TAB [Suspect]
     Active Substance: GUANFACINE
     Indication: ATTENTION DEFICIT/HYPERACTIVITY DISORDER
     Dosage: DOSE - 0.5 TABS QD
     Route: 048
     Dates: start: 20150130

REACTIONS (2)
  - Product substitution issue [None]
  - Tremor [None]

NARRATIVE: CASE EVENT DATE: 20150130
